FAERS Safety Report 8237892-4 (Version None)
Quarter: 2012Q1

REPORT INFORMATION
  Report Type: 
  Country: None (occurrence: None)
  Receive Date: 20120327
  Receipt Date: 20120313
  Transmission Date: 20120608
  Serious: Yes (Hospitalization, Other)
  Sender: FDA-Public Use
  Company Number: AU-MYLANLABS-2012S1005376

PATIENT
  Age: 64 Year
  Sex: Female

DRUGS (1)
  1. METFORMIN HCL [Suspect]
     Indication: DIABETES MELLITUS
     Route: 048
     Dates: start: 20120228

REACTIONS (7)
  - DYSPHONIA [None]
  - DYSPNOEA [None]
  - EYE IRRITATION [None]
  - ORAL PAIN [None]
  - EYE SWELLING [None]
  - SWOLLEN TONGUE [None]
  - ERYTHEMA [None]
